FAERS Safety Report 15272061 (Version 1)
Quarter: 2018Q3

REPORT INFORMATION
  Report Type: Report from Study
  Country: None (occurrence: US)
  Receive Date: 20180813
  Receipt Date: 20180813
  Transmission Date: 20181010
  Serious: Yes (Other)
  Sender: FDA-Public Use
  Company Number: US-ABBVIE-18P-163-2446426-00

PATIENT
  Age: 82 Year
  Sex: Male
  Weight: 97 kg

DRUGS (2)
  1. LEUPRORELIN ACETATE [Suspect]
     Active Substance: LEUPROLIDE ACETATE
     Indication: PROSTATE CANCER
     Route: 065
     Dates: start: 20160323
  2. ORTERONEL [Concomitant]
     Active Substance: ORTERONEL
     Indication: PROSTATE CANCER
     Route: 048
     Dates: start: 20160322, end: 20180524

REACTIONS (1)
  - Flank pain [Recovered/Resolved]

NARRATIVE: CASE EVENT DATE: 20180430
